FAERS Safety Report 9027109 (Version 1)
Quarter: 2013Q1

REPORT INFORMATION
  Report Type: Spontaneous
  Country: US (occurrence: US)
  Receive Date: 20130123
  Receipt Date: 20130123
  Transmission Date: 20140127
  Serious: Yes (Hospitalization)
  Sender: FDA-Public Use
  Company Number: US-SANOFI-AVENTIS-2013SA001920

PATIENT
  Age: 52 Year
  Sex: Female

DRUGS (3)
  1. AMBIEN [Suspect]
     Route: 065
     Dates: start: 2012, end: 2012
  2. ALL OTHER THERAPEUTIC PRODUCTS [Suspect]
     Indication: COR PULMONALE CHRONIC
     Dosage: 18 TO 72 MICROGRAMS (3 TO 12 BREATHS)
     Route: 065
     Dates: start: 20120215
  3. COUMADIN [Concomitant]

REACTIONS (2)
  - Adverse drug reaction [Recovered/Resolved]
  - Malaise [Recovered/Resolved]
